FAERS Safety Report 9140952 (Version 1)
Quarter: 2013Q1

REPORT INFORMATION
  Report Type: Spontaneous
  Country: US (occurrence: US)
  Receive Date: 20130305
  Receipt Date: 20130305
  Transmission Date: 20140127
  Serious: Yes (Other)
  Sender: FDA-Public Use
  Company Number: US-PFIZER INC-2013075021

PATIENT
  Age: 49 Year
  Sex: Male
  Weight: 65.76 kg

DRUGS (1)
  1. ZOLOFT [Suspect]
     Dosage: 50 MG, 1X/DAY
     Route: 048
     Dates: start: 2012, end: 201302

REACTIONS (2)
  - Personality change [Not Recovered/Not Resolved]
  - Memory impairment [Not Recovered/Not Resolved]
